FAERS Safety Report 6236617-1 (Version None)
Quarter: 2009Q2

REPORT INFORMATION
  Report Type: 
  Country: None (occurrence: None)
  Receive Date: 20090619
  Receipt Date: 20080808
  Transmission Date: 20091009
  Serious: No
  Sender: FDA-Public Use
  Company Number: US-ASTRAZENECA-2008UW13720

PATIENT
  Age: 27805 Day
  Sex: Female

DRUGS (2)
  1. ATACAND [Suspect]
     Route: 048
     Dates: start: 20080608, end: 20080610
  2. TOPROL-XL [Suspect]
     Route: 048

REACTIONS (2)
  - BLOOD PRESSURE DECREASED [None]
  - DIZZINESS [None]
